FAERS Safety Report 25710598 (Version 2)
Quarter: 2025Q4

REPORT INFORMATION
  Report Type: Spontaneous
  Country: US (occurrence: US)
  Receive Date: 20250821
  Receipt Date: 20251106
  Transmission Date: 20260118
  Serious: No
  Sender: ABBVIE
  Company Number: US-ABBVIE-6424779

PATIENT
  Age: 30 Year
  Sex: Female
  Weight: 51.709 kg

DRUGS (2)
  1. SYNTHROID [Suspect]
     Active Substance: LEVOTHYROXINE SODIUM
     Indication: Medullary thyroid cancer
     Route: 048
     Dates: start: 1997
  2. SYNTHROID [Suspect]
     Active Substance: LEVOTHYROXINE SODIUM
     Indication: Medullary thyroid cancer
     Route: 048
     Dates: start: 1997

REACTIONS (6)
  - Atrial fibrillation [Not Recovered/Not Resolved]
  - Atrial fibrillation [Not Recovered/Not Resolved]
  - Exophthalmos [Unknown]
  - Blood thyroid stimulating hormone decreased [Unknown]
  - Endocrine ophthalmopathy [Unknown]
  - Heart rate increased [Unknown]

NARRATIVE: CASE EVENT DATE: 19970101
